FAERS Safety Report 6892764-2 (Version None)
Quarter: 2010Q3

REPORT INFORMATION
  Report Type: 
  Country: None (occurrence: None)
  Receive Date: 20100731
  Receipt Date: 20080905
  Transmission Date: 20110219
  Serious: Yes (Hospitalization, Other)
  Sender: FDA-Public Use
  Company Number: US-PFIZER INC-2008075747

PATIENT
  Sex: Female

DRUGS (1)
  1. NEURONTIN [Suspect]
     Dates: start: 20080811

REACTIONS (4)
  - CARDIAC FAILURE CONGESTIVE [None]
  - DIZZINESS [None]
  - DRUG INEFFECTIVE [None]
  - NEURALGIA [None]
